FAERS Safety Report 8047087-5 (Version None)
Quarter: 2012Q1

REPORT INFORMATION
  Report Type: 
  Country: None (occurrence: None)
  Receive Date: 20120116
  Receipt Date: 20120111
  Transmission Date: 20120608
  Serious: Yes (Hospitalization, Other)
  Sender: FDA-Public Use
  Company Number: IE-JNJFOC-20110705898

PATIENT
  Sex: Female

DRUGS (1)
  1. NEOSPORIN [Suspect]
     Indication: WOUND TREATMENT
     Route: 061

REACTIONS (4)
  - APPLICATION SITE SWELLING [None]
  - DISCOMFORT [None]
  - BLISTER [None]
  - APPLICATION SITE RASH [None]
